FAERS Safety Report 16892281 (Version 1)
Quarter: 2019Q4

REPORT INFORMATION
  Report Type: Spontaneous
  Country: CN (occurrence: CN)
  Receive Date: 20191007
  Receipt Date: 20191007
  Transmission Date: 20200122
  Serious: Yes (Hospitalization)
  Sender: FDA-Public Use
  Company Number: CN-ASTRAZENECA-2019SF41473

PATIENT
  Age: 68 Year
  Sex: Female

DRUGS (2)
  1. OSIMERTINIB. [Suspect]
     Active Substance: OSIMERTINIB
     Indication: PNEUMONIA
     Route: 048
     Dates: start: 20190919
  2. OSIMERTINIB. [Suspect]
     Active Substance: OSIMERTINIB
     Indication: NEOPLASM
     Route: 048
     Dates: start: 20190919

REACTIONS (10)
  - Metastases to lung [Unknown]
  - Dizziness [Unknown]
  - Muscular weakness [Unknown]
  - Diarrhoea [Unknown]
  - Metastases to central nervous system [Unknown]
  - Headache [Unknown]
  - Asthma [Unknown]
  - Cough [Unknown]
  - Pyrexia [Unknown]
  - Dysstasia [Unknown]

NARRATIVE: CASE EVENT DATE: 20190919
